FAERS Safety Report 7246133-6 (Version None)
Quarter: 2011Q1

REPORT INFORMATION
  Report Type: 
  Country: None (occurrence: None)
  Receive Date: 20110126
  Receipt Date: 20110119
  Transmission Date: 20110831
  Serious: Yes (Other)
  Sender: FDA-Public Use
  Company Number: A0908733A

PATIENT
  Sex: Female

DRUGS (1)
  1. PAXIL [Suspect]
     Indication: PANIC ATTACK
     Route: 048
     Dates: start: 19990101, end: 20090901

REACTIONS (8)
  - ILL-DEFINED DISORDER [None]
  - ALCOHOLIC [None]
  - SUICIDAL IDEATION [None]
  - AGGRESSION [None]
  - ANGER [None]
  - DRUG ABUSER [None]
  - DISABILITY [None]
  - PATHOLOGICAL GAMBLING [None]
